FAERS Safety Report 5974104-6 (Version None)
Quarter: 2008Q4

REPORT INFORMATION
  Report Type: 
  Country: None (occurrence: None)
  Receive Date: 20081201
  Receipt Date: 20081121
  Transmission Date: 20090506
  Serious: Yes (Disabling)
  Sender: FDA-Public Use
  Company Number: US-ALLERGAN-0808553US

PATIENT
  Sex: Male
  Weight: 82.086 kg

DRUGS (8)
  1. BOTOX [Suspect]
     Indication: NECK PAIN
     Dosage: 100 UNITS, SINGLE
     Route: 030
     Dates: start: 20080206, end: 20080206
  2. BOTOX [Suspect]
     Indication: HEADACHE
  3. BOTOX [Suspect]
     Indication: TORTICOLLIS
  4. LIDOCAINE W/METHYLPREDNISOLONE [Concomitant]
     Indication: CUBITAL TUNNEL SYNDROME
     Dosage: UNK, SINGLE
     Dates: start: 20080206, end: 20080206
  5. LORTAB [Concomitant]
     Dosage: UNK, UNK
     Route: 048
     Dates: end: 20080319
  6. ROBAXIN [Concomitant]
     Dosage: 500 MG, QID
     Route: 048
     Dates: end: 20080319
  7. NAPROXEN [Concomitant]
     Dosage: 500 MG, BID
     Route: 048
     Dates: end: 20080319
  8. CELEXA [Concomitant]
     Dosage: 20 MG, QD
     Route: 048
     Dates: end: 20080319

REACTIONS (8)
  - DYSPNOEA [None]
  - HEADACHE [None]
  - HYPOAESTHESIA [None]
  - LETHARGY [None]
  - MUSCLE SPASMS [None]
  - MUSCULAR WEAKNESS [None]
  - NECK PAIN [None]
  - PHOTOPHOBIA [None]
